FAERS Safety Report 23516866 (Version 3)
Quarter: 2024Q2

REPORT INFORMATION
  Report Type: Spontaneous
  Country: IT (occurrence: IT)
  Receive Date: 20240213
  Receipt Date: 20240603
  Transmission Date: 20240715
  Serious: Yes (Other)
  Sender: FDA-Public Use
  Company Number: IT-TEVA-VS-3153236

PATIENT
  Age: 29 Year
  Sex: Male

DRUGS (3)
  1. LACOSAMIDE [Suspect]
     Active Substance: LACOSAMIDE
     Indication: Epilepsy
     Route: 065
     Dates: start: 20240106, end: 2024
  2. TEGRETOL [Concomitant]
     Active Substance: CARBAMAZEPINE
     Dosage: TIME INTERVAL: 0.33333333 DAYS: MODIFIED RELEASE
  3. CENOBAMATE [Concomitant]
     Active Substance: CENOBAMATE
     Dosage: 50 MG IN THE MORNING AND AFTERNOON, 200 MG IN THE EVENING

REACTIONS (5)
  - Seizure [Unknown]
  - Drug effect less than expected [Unknown]
  - Fall [Unknown]
  - Epilepsy [Unknown]
  - Face injury [Unknown]

NARRATIVE: CASE EVENT DATE: 20240101
